FAERS Safety Report 9710814 (Version 1)
Quarter: 2013Q4

REPORT INFORMATION
  Report Type: Spontaneous
  Country: US (occurrence: None)
  Receive Date: 20131125
  Receipt Date: 20131125
  Transmission Date: 20140711
  Serious: Yes (Other)
  Sender: FDA-Public Use
  Company Number: None

PATIENT
  Age: 56 Year
  Sex: Female
  Weight: 58.97 kg

DRUGS (1)
  1. DOXYCYCLINE HYCLATE [Suspect]
     Indication: ROSACEA
     Dosage: 2 PILLS A DAY TWICE DAILY TAKEN BY MOUTH
     Route: 048

REACTIONS (5)
  - Palpitations [None]
  - Muscle spasms [None]
  - Anxiety [None]
  - Mood swings [None]
  - Depression [None]
